FAERS Safety Report 8794535 (Version 1)
Quarter: 2012Q4

REPORT INFORMATION
  Report Type: 
  Country: US (occurrence: US)
  Receive Date: 20120917
  Receipt Date: 20120917
  Transmission Date: 20130627
  Serious: Yes (Other)
  Sender: FDA-Public Use
  Company Number: US-VERTEX PHARMACEUTICAL INC.-AE-2012-011994

PATIENT
  Age: 63 Year
  Sex: Female

DRUGS (12)
  1. INCIVEK [Suspect]
     Indication: HEPATITIS C
     Dosage: 750 mg, UNK
     Route: 048
     Dates: start: 20120512, end: 20120812
  2. PEGASYS [Suspect]
     Indication: HEPATITIS C
     Dosage: 180 ?g, UNK
     Route: 058
     Dates: start: 20120512
  3. RIBAVIRIN [Suspect]
     Indication: HEPATITIS C
     Dosage: 400 mg, bid
     Route: 048
     Dates: start: 20120512
  4. RIBAVIRIN [Suspect]
     Dosage: 600 mg, qd
     Route: 048
  5. RIBAVIRIN [Suspect]
     Dosage: UNK
  6. BENADRYL                           /00000402/ [Concomitant]
  7. VENLAFAXINE [Concomitant]
     Dosage: 75 mg, qd
     Route: 048
  8. TRAZODONE [Concomitant]
     Dosage: 50 mg, UNK
     Route: 048
  9. ACAI BERRY EXTRACT [Concomitant]
     Dosage: UNK, qd
     Route: 048
  10. HYDROCHLOROTHIAZIDE [Concomitant]
     Dosage: 25 mg, qd
     Route: 048
  11. TRAMADOL [Concomitant]
     Dosage: 50 mg, qd
     Route: 048
  12. ASPIRIN [Concomitant]
     Dosage: 81 mg, qd
     Route: 048

REACTIONS (3)
  - Anaemia [Unknown]
  - Rash papular [Not Recovered/Not Resolved]
  - Pruritus [Unknown]
